FAERS Safety Report 15411637 (Version 2)
Quarter: 2018Q4

REPORT INFORMATION
  Report Type: Report from Study
  Country: None (occurrence: US)
  Receive Date: 20180921
  Receipt Date: 20181105
  Transmission Date: 20190204
  Serious: Yes (Other)
  Sender: FDA-Public Use
  Company Number: US-ABBVIE-18K-163-2487198-00

PATIENT
  Age: 87 Year
  Sex: Female

DRUGS (1)
  1. HUMIRA [Suspect]
     Active Substance: ADALIMUMAB
     Indication: COLITIS ULCERATIVE
     Route: 058

REACTIONS (8)
  - Leukaemia [Unknown]
  - Spinal compression fracture [Unknown]
  - Malnutrition [Unknown]
  - Decreased appetite [Unknown]
  - Fall [Unknown]
  - Pancreatic failure [Unknown]
  - Weight decreased [Unknown]
  - Tooth fracture [Unknown]

NARRATIVE: CASE EVENT DATE: 201808
